FAERS Safety Report 7343986-8 (Version None)
Quarter: 2011Q1

REPORT INFORMATION
  Report Type: 
  Country: None (occurrence: None)
  Receive Date: 20110310
  Receipt Date: 20100324
  Transmission Date: 20110831
  Serious: No
  Sender: FDA-Public Use
  Company Number: A0852732A

PATIENT
  Age: 49 Year
  Sex: Female

DRUGS (1)
  1. NICOTINE LOZENGE [Suspect]
     Route: 002

REACTIONS (1)
  - NICOTINE DEPENDENCE [None]
